FAERS Safety Report 9152242 (Version 1)
Quarter: 2013Q1

REPORT INFORMATION
  Report Type: Spontaneous
  Country: CA (occurrence: CA)
  Receive Date: 20130308
  Receipt Date: 20130308
  Transmission Date: 20140127
  Serious: Yes (Life-Threatening, Hospitalization)
  Sender: FDA-Public Use
  Company Number: CA-B.I. PHARMACEUTICALS,INC./RIDGEFIELD-2013-CN-00335CN

PATIENT
  Age: 98 Year
  Sex: Male
  Weight: 24.94 kg

DRUGS (9)
  1. PRADAX [Suspect]
     Dosage: 220 MG
     Route: 065
  2. ALTACE [Concomitant]
  3. CYMBALTA [Concomitant]
  4. ELTROXIN [Concomitant]
  5. ENSURE [Concomitant]
  6. FERROUS GLUCONATE [Concomitant]
  7. LIPITOR [Concomitant]
  8. MULTIVITAMINE(S) [Concomitant]
  9. NORVASC [Concomitant]

REACTIONS (3)
  - Haemoglobin decreased [Recovered/Resolved]
  - Lower gastrointestinal haemorrhage [Recovered/Resolved]
  - Transfusion [Recovered/Resolved]
